FAERS Safety Report 19730170 (Version 2)
Quarter: 2021Q4

REPORT INFORMATION
  Report Type: Spontaneous
  Country: US (occurrence: US)
  Receive Date: 20210820
  Receipt Date: 20211005
  Transmission Date: 20220303
  Serious: Yes (Hospitalization, Other)
  Sender: FDA-Public Use
  Company Number: US-ELI_LILLY_AND_COMPANY-US202108004785

PATIENT
  Age: 61 Year
  Sex: Male
  Weight: 94.33 kg

DRUGS (1)
  1. TRULICITY [Suspect]
     Active Substance: DULAGLUTIDE
     Indication: Type 2 diabetes mellitus
     Dosage: 1.5 MG, WEEKLY (1/W)
     Route: 058
     Dates: start: 20210318, end: 20210804

REACTIONS (7)
  - Cerebral infarction [Recovering/Resolving]
  - Diabetes mellitus inadequate control [Recovering/Resolving]
  - Hypertension [Recovering/Resolving]
  - Arteriosclerosis [Unknown]
  - Aortic arteriosclerosis [Unknown]
  - Cataract [Not Recovered/Not Resolved]
  - Haemoglobin decreased [Unknown]

NARRATIVE: CASE EVENT DATE: 20210711
